FAERS Safety Report 10626919 (Version 1)
Quarter: 2014Q4

REPORT INFORMATION
  Report Type: Spontaneous
  Country: US (occurrence: US)
  Receive Date: 20141204
  Receipt Date: 20141204
  Transmission Date: 20150529
  Serious: No
  Sender: FDA-Public Use
  Company Number: US-PFIZER INC-2014329711

PATIENT
  Age: 67 Year
  Sex: Female
  Weight: 57 kg

DRUGS (2)
  1. TYLENOL COLD MULTI-SYMPTOM NIGHTTIME [Suspect]
     Active Substance: ACETAMINOPHEN\DEXTROMETHORPHAN HYDROBROMIDE\DOXYLAMINE SUCCINATE\PHENYLEPHRINE
     Indication: NASOPHARYNGITIS
     Dosage: 1 1/2 TABLESPOONS, ONCE
     Route: 048
     Dates: start: 20141017
  2. IBUPROFEN. [Suspect]
     Active Substance: IBUPROFEN
     Indication: NASOPHARYNGITIS
     Dosage: 200 MG (1 TABLET), ONCE A DAY

REACTIONS (3)
  - Product taste abnormal [Not Recovered/Not Resolved]
  - Oral discomfort [Not Recovered/Not Resolved]
  - Somnolence [Not Recovered/Not Resolved]

NARRATIVE: CASE EVENT DATE: 20141017
